FAERS Safety Report 5730532-5 (Version None)
Quarter: 2008Q2

REPORT INFORMATION
  Report Type: 
  Country: None (occurrence: None)
  Receive Date: 20080507
  Receipt Date: 20080501
  Transmission Date: 20081010
  Serious: Yes (Other)
  Sender: FDA-Public Use
  Company Number: GB-ASTRAZENECA-2008GB00827

PATIENT
  Age: 64 Year
  Sex: Male
  Weight: 74 kg

DRUGS (2)
  1. ROSUVASTATIN [Suspect]
     Route: 048
     Dates: start: 20080410
  2. ALISKIREN [Suspect]
     Indication: HYPERTENSION
     Route: 048
     Dates: start: 20080410

REACTIONS (1)
  - HYPOGLYCAEMIA [None]
